FAERS Safety Report 7780490-7 (Version None)
Quarter: 2011Q3

REPORT INFORMATION
  Report Type: 
  Country: None (occurrence: None)
  Receive Date: 20110927
  Receipt Date: 20110810
  Transmission Date: 20111222
  Serious: No
  Sender: FDA-Public Use
  Company Number: US-GLAXOSMITHKLINE-A0940378A

PATIENT
  Age: 64 Year
  Sex: Female

DRUGS (2)
  1. ASPIRIN [Concomitant]
  2. LAMICTAL [Suspect]
     Indication: SCIATICA
     Dosage: 100MG PER DAY
     Route: 048
     Dates: start: 20110427

REACTIONS (1)
  - CONSTIPATION [None]
